FAERS Safety Report 24180586 (Version 3)
Quarter: 2024Q3

REPORT INFORMATION
  Report Type: Spontaneous
  Country: BG (occurrence: None)
  Receive Date: 20240806
  Receipt Date: 20240905
  Transmission Date: 20241017
  Serious: Yes (Death, Other)
  Sender: ASTRAZENECA
  Company Number: 2024A171481

PATIENT
  Age: 79 Year
  Sex: Female
  Weight: 100 kg

DRUGS (1)
  1. DAPAGLIFLOZIN [Suspect]
     Active Substance: DAPAGLIFLOZIN
     Indication: Chronic kidney disease
     Route: 048
     Dates: start: 20240704, end: 20240725

REACTIONS (8)
  - Pulmonary congestion [Fatal]
  - Pulmonary oedema [Fatal]
  - Circulatory collapse [Fatal]
  - Cardiac failure congestive [Fatal]
  - Hypotension [Fatal]
  - Metabolic acidosis [Unknown]
  - Polyuria [Unknown]
  - Dyspnoea [Unknown]
